FAERS Safety Report 7712840-1 (Version None)
Quarter: 2011Q3

REPORT INFORMATION
  Report Type: 
  Country: None (occurrence: None)
  Receive Date: 20110826
  Receipt Date: 20110824
  Transmission Date: 20111222
  Serious: Yes (Hospitalization, Other)
  Sender: FDA-Public Use
  Company Number: US-BRISTOL-MYERS SQUIBB COMPANY-15899644

PATIENT
  Age: 83 Year
  Sex: Female
  Weight: 53 kg

DRUGS (8)
  1. LOMOTIL [Concomitant]
     Indication: DIARRHOEA
     Dates: start: 20110428
  2. CALCIUM CARBONATE [Concomitant]
     Indication: HYPOCALCAEMIA
     Dates: start: 20110504
  3. PRILOSEC [Concomitant]
     Indication: ABDOMINAL PAIN UPPER
  4. PACLITAXEL [Suspect]
     Indication: BREAST CANCER
     Dosage: INTR ON 25MAY11. PACLITAXEL CYCLE 2 DAY 8 DOSE WAS HELD ON 25MAY11,RESUMED ON 01JUN11
     Route: 042
     Dates: start: 20110420
  5. LEVOTHYROXINE SODIUM [Concomitant]
     Indication: HYPOTHYROIDISM
     Dates: start: 19520101, end: 20110525
  6. NEUTRA-PHOS [Concomitant]
     Indication: HYPOPHOSPHATAEMIA
     Dates: start: 20110518
  7. IMODIUM [Concomitant]
     Indication: DIARRHOEA
     Dates: start: 20110422
  8. POTASSIUM CHLORIDE [Concomitant]
     Indication: HYPOKALAEMIA
     Dates: start: 20110511

REACTIONS (1)
  - TRANSIENT ISCHAEMIC ATTACK [None]
